FAERS Safety Report 24317521 (Version 2)
Quarter: 2025Q3

REPORT INFORMATION
  Report Type: Spontaneous
  Country: US (occurrence: US)
  Receive Date: 20240913
  Receipt Date: 20250729
  Transmission Date: 20251020
  Serious: Yes (Other)
  Sender: BRISTOL-MYERS SQUIBB COMPANY
  Company Number: US-BRISTOL-MYERS SQUIBB COMPANY-2024-141428

PATIENT
  Age: 80 Year
  Sex: Male

DRUGS (2)
  1. REVLIMID [Suspect]
     Active Substance: LENALIDOMIDE
     Indication: Plasma cell myeloma
     Dosage: TAKE 1 CAPSULE BY MOUTH EVERY OTHER DAY
     Route: 048
  2. REVLIMID [Suspect]
     Active Substance: LENALIDOMIDE
     Dosage: TAKE 1 CAPSULE BY MOUTH EVERY OTHER DAY FOR 2 WEEKS ON AND 1 WEEK OFF
     Route: 048

REACTIONS (9)
  - Renal injury [Not Recovered/Not Resolved]
  - Decreased appetite [Unknown]
  - Hypertension [Unknown]
  - Fatigue [Unknown]
  - Arthritis [Unknown]
  - Dysgeusia [Unknown]
  - Balance disorder [Unknown]
  - Weight decreased [Unknown]
  - Ageusia [Unknown]
